FAERS Safety Report 6932621-6 (Version None)
Quarter: 2010Q3

REPORT INFORMATION
  Report Type: 
  Country: None (occurrence: None)
  Receive Date: 20100817
  Receipt Date: 20100802
  Transmission Date: 20110219
  Serious: Yes (Hospitalization)
  Sender: FDA-Public Use
  Company Number: TPA2010A04353

PATIENT
  Age: 67 Year
  Sex: Female
  Weight: 68.0396 kg

DRUGS (4)
  1. PREVACID [Suspect]
     Indication: SCLERODERMA
     Dosage: 30 MG, 2 IN 1 D, PER ORAL
     Route: 048
     Dates: start: 19910101
  2. FUROSEMIDE [Concomitant]
  3. ENALAPRIL MALEATE [Concomitant]
  4. ARIMIDEX (ALL OTHER THERAPEUTIC PRODUCTS) [Concomitant]

REACTIONS (1)
  - BREAST CANCER [None]
